FAERS Safety Report 5081309-8 (Version None)
Quarter: 2006Q3

REPORT INFORMATION
  Report Type: 
  Country: None (occurrence: None)
  Receive Date: 20060814
  Receipt Date: 20060814
  Transmission Date: 20061208
  Serious: Yes (Life-Threatening)
  Sender: FDA-Public Use
  Company Number: None

PATIENT
  Age: 3 Year
  Sex: Male
  Weight: 19.5 kg

DRUGS (5)
  1. THIOGUANINE [Suspect]
     Indication: ACUTE LYMPHOCYTIC LEUKAEMIA
     Dosage: 40 MG 1 TAB X 14 DAYS PO
     Route: 048
     Dates: start: 20060727
  2. METHOTREXATE [Concomitant]
  3. CYTOXAN [Concomitant]
  4. ARAC [Concomitant]
  5. THIOGUANINE [Concomitant]

REACTIONS (23)
  - ABDOMINAL DISTENSION [None]
  - ABDOMINAL PAIN [None]
  - ASCITES [None]
  - BURNING SENSATION [None]
  - CONTUSION [None]
  - CRYING [None]
  - DYSURIA [None]
  - FATIGUE [None]
  - HEPATOMEGALY [None]
  - HYPERBILIRUBINAEMIA [None]
  - HYPOALBUMINAEMIA [None]
  - LETHARGY [None]
  - OEDEMA [None]
  - ORAL INTAKE REDUCED [None]
  - PAIN IN EXTREMITY [None]
  - PALLOR [None]
  - PYREXIA [None]
  - SCREAMING [None]
  - ULTRASOUND ABDOMEN ABNORMAL [None]
  - URINE ANALYSIS ABNORMAL [None]
  - URINE OUTPUT DECREASED [None]
  - VENOOCCLUSIVE LIVER DISEASE [None]
  - WEIGHT INCREASED [None]
